FAERS Safety Report 9036403 (Version 1)
Quarter: 2013Q1

REPORT INFORMATION
  Report Type: Spontaneous
  Country: US (occurrence: None)
  Receive Date: 20130123
  Receipt Date: 20130123
  Transmission Date: 20140127
  Serious: No
  Sender: FDA-Public Use
  Company Number: None

PATIENT
  Age: 28 Year
  Sex: Female
  Weight: 79.38 kg

DRUGS (10)
  1. CEFTAROLINE [Suspect]
     Indication: ENDOCARDITIS STAPHYLOCOCCAL
     Route: 042
     Dates: start: 20121203, end: 20130119
  2. CEFTAROLINE [Suspect]
     Route: 042
     Dates: start: 20121203, end: 20130119
  3. CEFTAROLINE [Suspect]
     Route: 042
     Dates: start: 20121203, end: 20130119
  4. BUPRENORPHINE [Concomitant]
  5. VITAMIN C [Concomitant]
  6. ACETAMINOPHEN [Concomitant]
  7. HYDRALAZINE [Concomitant]
  8. ONDANSETRON [Concomitant]
  9. NICOTINE PATCH [Concomitant]
  10. SUBCUTANEOUS HEPARIN [Concomitant]

REACTIONS (2)
  - Tubulointerstitial nephritis [None]
  - Pruritus [None]
